FAERS Safety Report 17413157 (Version 1)
Quarter: 2020Q1

REPORT INFORMATION
  Report Type: Spontaneous
  Country: US (occurrence: US)
  Receive Date: 20200212
  Receipt Date: 20200212
  Transmission Date: 20200409
  Serious: Yes (Other)
  Sender: FDA-Public Use
  Company Number: None

PATIENT
  Sex: Female
  Weight: 90.72 kg

DRUGS (3)
  1. GLIPIZIDE. [Concomitant]
     Active Substance: GLIPIZIDE
  2. DU LOXETINE [Concomitant]
  3. DULOXETINE. [Suspect]
     Active Substance: DULOXETINE

REACTIONS (2)
  - Hallucination [None]
  - Feeling abnormal [None]
